FAERS Safety Report 26103738 (Version 1)
Quarter: 2025Q4

REPORT INFORMATION
  Report Type: Spontaneous
  Country: SA (occurrence: SA)
  Receive Date: 20251129
  Receipt Date: 20251129
  Transmission Date: 20260118
  Serious: No
  Sender: ANI
  Company Number: SA-ANIPHARMA-031218

PATIENT
  Sex: Female

DRUGS (1)
  1. FLUVOXAMINE MALEATE [Suspect]
     Active Substance: FLUVOXAMINE MALEATE
     Indication: Obsessive-compulsive disorder
     Dosage: APPROXIMATELY 450 MG

REACTIONS (3)
  - Bruxism [Recovered/Resolved]
  - Abnormal dreams [Unknown]
  - Off label use [Unknown]
